FAERS Safety Report 7224116-X (Version None)
Quarter: 2011Q1

REPORT INFORMATION
  Report Type: 
  Country: None (occurrence: None)
  Receive Date: 20110106
  Receipt Date: 20110106
  Transmission Date: 20110831
  Serious: Yes (Hospitalization)
  Sender: FDA-Public Use
  Company Number: None

PATIENT
  Age: 70 Year
  Sex: Female
  Weight: 57.7 kg

DRUGS (14)
  1. PLAVIX [Suspect]
     Indication: CORONARY ANGIOPLASTY
     Dosage: 75MG DAILY PO  RECENT
     Route: 048
  2. IMDUR XR [Concomitant]
  3. ASPIRIN [Suspect]
     Indication: CORONARY ARTERY DISEASE
     Dosage: 162 MG QHS PO  CHRONIC
     Route: 048
  4. TOPROL-XL [Concomitant]
  5. AMLODIPINE [Concomitant]
  6. CALCIUM + VIT D [Concomitant]
  7. ZOCOR [Concomitant]
  8. PHENOBARB [Concomitant]
  9. M.V.I. [Concomitant]
  10. DILANTIN XR [Concomitant]
  11. FENOFIBRATE [Concomitant]
  12. FOSAMAX [Concomitant]
  13. GLUCOSAMINE CHONDROITIN [Concomitant]
  14. ZANTAC [Concomitant]

REACTIONS (3)
  - HAEMATOMA [None]
  - ABDOMINAL PAIN [None]
  - ABDOMINAL TENDERNESS [None]
